FAERS Safety Report 6424571-9 (Version None)
Quarter: 2009Q4

REPORT INFORMATION
  Report Type: 
  Country: None (occurrence: None)
  Receive Date: 20091103
  Receipt Date: 20091019
  Transmission Date: 20100525
  Serious: No
  Sender: FDA-Public Use
  Company Number: PHHY2009FR40503

PATIENT
  Sex: Female
  Weight: 60 kg

DRUGS (1)
  1. EXFORGE [Suspect]
     Indication: HYPERTENSION
     Dosage: 80/5MG
     Dates: start: 20081218

REACTIONS (3)
  - ANGIODERMATITIS [None]
  - PURPURA [None]
  - VEIN DISORDER [None]
